FAERS Safety Report 17938271 (Version 2)
Quarter: 2020Q3

REPORT INFORMATION
  Report Type: Report from Study
  Country: None (occurrence: NZ)
  Receive Date: 20200624
  Receipt Date: 20200708
  Transmission Date: 20201103
  Serious: Yes (Other)
  Sender: FDA-Public Use
  Company Number: NZ-ABBVIE-20K-118-3455138-00

PATIENT
  Sex: Male
  Weight: 82 kg

DRUGS (2)
  1. HUMIRA [Suspect]
     Active Substance: ADALIMUMAB
     Indication: CROHN^S DISEASE
     Route: 058
     Dates: start: 20140130
  2. HUMIRA [Suspect]
     Active Substance: ADALIMUMAB
     Indication: ANKYLOSING SPONDYLITIS
     Route: 058
     Dates: start: 202006

REACTIONS (7)
  - Coeliac disease [Unknown]
  - Intestinal resection [Unknown]
  - Incisional hernia [Unknown]
  - Intestinal anastomosis complication [Unknown]
  - Stenosis [Unknown]
  - Faecal calprotectin increased [Unknown]
  - Ileal stenosis [Unknown]

NARRATIVE: CASE EVENT DATE: 2015
